FAERS Safety Report 6141776-5 (Version None)
Quarter: 2009Q2

REPORT INFORMATION
  Report Type: 
  Country: None (occurrence: None)
  Receive Date: 20090402
  Receipt Date: 20081001
  Transmission Date: 20091009
  Serious: No
  Sender: FDA-Public Use
  Company Number: US-ABBOTT-08P-163-0478047-00

PATIENT
  Sex: Female

DRUGS (1)
  1. LUPRON DEPOT [Suspect]
     Indication: ADENOMYOSIS
     Route: 030
     Dates: start: 20080731

REACTIONS (4)
  - BREAST TENDERNESS [None]
  - HOT FLUSH [None]
  - INJECTION SITE IRRITATION [None]
  - MENORRHAGIA [None]
